FAERS Safety Report 13764086 (Version 2)
Quarter: 2018Q1

REPORT INFORMATION
  Report Type: Report from Study
  Country: US (occurrence: US)
  Receive Date: 20170718
  Receipt Date: 20180115
  Transmission Date: 20180508
  Serious: No
  Sender: FDA-Public Use
  Company Number: US-VANDA PHARMACEUTICALS, INC-2017TASUS001630

PATIENT
  Age: 62 Year
  Sex: Female
  Weight: 71.66 kg

DRUGS (2)
  1. HETLIOZ [Suspect]
     Active Substance: TASIMELTEON
     Indication: NON-24-HOUR SLEEP-WAKE DISORDER
     Dosage: 20 MG, DAILY AT 9PM
     Route: 048
     Dates: start: 201408
  2. HETLIOZ [Suspect]
     Active Substance: TASIMELTEON
     Indication: CIRCADIAN RHYTHM SLEEP DISORDER

REACTIONS (4)
  - Sleep disorder [Unknown]
  - Asthenia [Unknown]
  - Abnormal dreams [Unknown]
  - Middle insomnia [Unknown]

NARRATIVE: CASE EVENT DATE: 201707
